FAERS Safety Report 26129216 (Version 2)
Quarter: 2025Q4

REPORT INFORMATION
  Report Type: Spontaneous
  Country: EU (occurrence: EU)
  Receive Date: 20251208
  Receipt Date: 20251210
  Transmission Date: 20260117
  Serious: Yes (Other)
  Sender: AMGEN
  Company Number: EU-AMGEN-DEUSP2025242182

PATIENT
  Age: 10 Year
  Sex: Female

DRUGS (1)
  1. PROCYSBI [Suspect]
     Active Substance: CYSTEAMINE BITARTRATE
     Indication: Cystinosis
     Dosage: UNK
     Route: 048

REACTIONS (3)
  - Renal failure [Recovered/Resolved]
  - Hypothyroidism [Not Recovered/Not Resolved]
  - Dyspepsia [Unknown]
